FAERS Safety Report 7385222-2 (Version None)
Quarter: 2011Q1

REPORT INFORMATION
  Report Type: 
  Country: None (occurrence: None)
  Receive Date: 20110330
  Receipt Date: 20101214
  Transmission Date: 20110831
  Serious: Yes (Hospitalization, Other)
  Sender: FDA-Public Use
  Company Number: AU-AMGEN-AUSCT2010007286

PATIENT
  Age: 32 Year
  Sex: Female

DRUGS (10)
  1. ANTIHYPERTENSIVES [Concomitant]
     Dosage: UNK
  2. SEVELAMER [Concomitant]
     Dosage: 800 MG, TID
  3. DOMPERIDONE [Concomitant]
     Dosage: UNK
  4. CALTRATE                           /00108001/ [Concomitant]
  5. PANTOPRAZOLE [Concomitant]
  6. METOPROLOL TARTRATE [Concomitant]
     Dosage: 25 MG, BID
  7. CINACALCET HYDROCHLORIDE [Suspect]
     Dosage: UNK
     Dates: start: 20091109
  8. SENSIPAR [Suspect]
     Dosage: UNK UNK, QD
     Route: 048
     Dates: start: 20101008
  9. LERCANIDIPINE [Concomitant]
     Dosage: 10 MG, UNK
  10. CALCITROL                          /00508501/ [Concomitant]
     Dosage: UNK UNK, TID

REACTIONS (1)
  - ANXIETY [None]
